FAERS Safety Report 4556075-2 (Version None)
Quarter: 2005Q1

REPORT INFORMATION
  Report Type: 
  Country: None (occurrence: None)
  Receive Date: 20050118
  Receipt Date: 20040420
  Transmission Date: 20050727
  Serious: Yes (Hospitalization)
  Sender: FDA-Public Use
  Company Number: A001-002-005573

PATIENT
  Age: 79 Year
  Sex: Female
  Weight: 70 kg

DRUGS (5)
  1. ARICEPT [Suspect]
     Indication: DEMENTIA ALZHEIMER'S TYPE
     Dosage: 10 MG 1 IN 1 D  ORAL
     Route: 048
     Dates: start: 19980101, end: 20010101
  2. ARICEPT [Suspect]
     Indication: DEMENTIA ALZHEIMER'S TYPE
     Dosage: 10 MG 1 IN 1 D  ORAL
     Route: 048
     Dates: start: 20010101
  3. LIPITOR [Suspect]
     Indication: BLOOD CHOLESTEROL INCREASED
     Dosage: 40 MG, ORAL
     Route: 048
     Dates: start: 20040401, end: 20040401
  4. FOSAMAX [Concomitant]
  5. VERAPAMIL [Concomitant]

REACTIONS (2)
  - DRUG INEFFECTIVE [None]
  - SYNCOPE [None]
